FAERS Safety Report 6180782-1 (Version None)
Quarter: 2009Q2

REPORT INFORMATION
  Report Type: 
  Country: None (occurrence: None)
  Receive Date: 20090504
  Receipt Date: 20090429
  Transmission Date: 20091009
  Serious: Yes (Hospitalization)
  Sender: FDA-Public Use
  Company Number: 2009SP009247

PATIENT
  Age: 53 Year
  Sex: Female

DRUGS (4)
  1. PEG-INTRON [Suspect]
     Indication: HEPATITIS C
     Dosage: SC
     Route: 058
     Dates: start: 20080807
  2. RIBASPHERE [Suspect]
     Indication: HEPATITIS C
     Dates: start: 20080807
  3. PLENDIL [Concomitant]
  4. WELLBUTRIN SR [Concomitant]

REACTIONS (1)
  - HIP FRACTURE [None]
